FAERS Safety Report 12744831 (Version 2)
Quarter: 2016Q3

REPORT INFORMATION
  Report Type: Spontaneous
  Country: JP (occurrence: JP)
  Receive Date: 20160915
  Receipt Date: 20160926
  Transmission Date: 20161109
  Serious: Yes (Other)
  Sender: FDA-Public Use
  Company Number: JP-ROCHE-1829872

PATIENT
  Age: 5 Year
  Sex: Male

DRUGS (10)
  1. DORMICUM (INJ) [Suspect]
     Active Substance: MIDAZOLAM HYDROCHLORIDE
     Indication: STATUS EPILEPTICUS
     Route: 065
  2. DIAZEPAM. [Suspect]
     Active Substance: DIAZEPAM
     Indication: STATUS EPILEPTICUS
     Route: 042
  3. LIDOCAINE. [Concomitant]
     Active Substance: LIDOCAINE
     Route: 065
  4. PROPOFOL. [Concomitant]
     Active Substance: PROPOFOL
     Route: 042
  5. ZONISAMIDE. [Concomitant]
     Active Substance: ZONISAMIDE
  6. PHENOBARBITAL. [Suspect]
     Active Substance: PHENOBARBITAL
     Indication: STATUS EPILEPTICUS
     Route: 065
  7. PHENOBARBITAL. [Suspect]
     Active Substance: PHENOBARBITAL
     Route: 048
  8. LEVETIRACETAM. [Concomitant]
     Active Substance: LEVETIRACETAM
     Route: 042
  9. FOSPHENYTOIN SODIUM. [Suspect]
     Active Substance: FOSPHENYTOIN SODIUM
     Indication: STATUS EPILEPTICUS
     Route: 065
  10. THIOPENTAL SODIUM. [Concomitant]
     Active Substance: THIOPENTAL SODIUM

REACTIONS (2)
  - Obstructive airways disorder [Unknown]
  - Off label use [Unknown]
